FAERS Safety Report 6134897-4 (Version None)
Quarter: 2009Q1

REPORT INFORMATION
  Report Type: 
  Country: None (occurrence: None)
  Receive Date: 20090327
  Receipt Date: 20090310
  Transmission Date: 20090719
  Serious: Yes (Other)
  Sender: FDA-Public Use
  Company Number: US-PFIZER INC-2009181499

PATIENT
  Sex: Female
  Weight: 29.932 kg

DRUGS (4)
  1. LIPITOR [Suspect]
     Indication: BLOOD CHOLESTEROL INCREASED
     Dosage: 40 MG, 1X/DAY
     Dates: start: 20050101
  2. TOPROL-XL [Concomitant]
     Dosage: UNK
  3. CALCIUM [Concomitant]
     Dosage: UNK
  4. FOSAMAX PLUS D [Concomitant]
     Dosage: UNK

REACTIONS (5)
  - BLOOD CHOLESTEROL INCREASED [None]
  - COELIAC DISEASE [None]
  - DIZZINESS [None]
  - PARAESTHESIA [None]
  - WRONG TECHNIQUE IN DRUG USAGE PROCESS [None]
